FAERS Safety Report 10487172 (Version 1)
Quarter: 2014Q4

REPORT INFORMATION
  Report Type: Report from Study
  Country: ES (occurrence: ES)
  Receive Date: 20141001
  Receipt Date: 20141001
  Transmission Date: 20150528
  Serious: Yes (Other)
  Sender: FDA-Public Use
  Company Number: ES-AMGEN-ESPSL2014074601

PATIENT
  Sex: Female

DRUGS (1)
  1. PROLIA [Suspect]
     Active Substance: DENOSUMAB
     Indication: OSTEOPOROSIS POSTMENOPAUSAL
     Dosage: UNK
     Route: 065

REACTIONS (10)
  - Rheumatoid arthritis [Unknown]
  - Back pain [Unknown]
  - Depression [Unknown]
  - Diabetes mellitus [Unknown]
  - Crohn^s disease [Unknown]
  - Menopausal symptoms [Unknown]
  - Insomnia [Unknown]
  - Body height decreased [Unknown]
  - Hypertension [Unknown]
  - Hypogonadism [Unknown]
